FAERS Safety Report 16058788 (Version 1)
Quarter: 2020Q3

REPORT INFORMATION
  Report Type: Report from Study
  Country: GB (occurrence: GB)
  Receive Date: 20190311
  Receipt Date: 20190311
  Transmission Date: 20201104
  Serious: Yes (Other)
  Sender: FDA-Public Use
  Company Number: GB-JNJFOC-20190303273

PATIENT
  Sex: Male

DRUGS (4)
  1. IPATASERTIB. [Suspect]
     Active Substance: IPATASERTIB
     Indication: PROSTATE CANCER METASTATIC
     Dosage: 400 OR 200 MG
     Route: 048
  2. ABIRATERONE ACETATE. [Suspect]
     Active Substance: ABIRATERONE ACETATE
     Indication: PROSTATE CANCER METASTATIC
     Route: 048
  3. PLACEBO [Suspect]
     Active Substance: UNSPECIFIED INGREDIENT
     Indication: PROSTATE CANCER METASTATIC
     Dosage: 400 OR 200 MG
     Route: 048
  4. PREDNISONE. [Suspect]
     Active Substance: PREDNISONE
     Indication: PROSTATE CANCER METASTATIC
     Route: 048

REACTIONS (20)
  - Pneumonia [Unknown]
  - Sepsis [Unknown]
  - Anaemia [Unknown]
  - Urinary tract infection [Unknown]
  - Fatigue [Unknown]
  - Hyperglycaemia [Unknown]
  - Asthenia [Unknown]
  - Diarrhoea [Unknown]
  - Decreased appetite [Unknown]
  - Nausea [Unknown]
  - Septic shock [Unknown]
  - Haematuria [Unknown]
  - Treatment noncompliance [Unknown]
  - Gastrointestinal toxicity [Unknown]
  - Rash [Unknown]
  - Vomiting [Unknown]
  - Back pain [Unknown]
  - Infection [Unknown]
  - Pyrexia [Unknown]
  - Urinary retention [Unknown]
